FAERS Safety Report 18762864 (Version 1)
Quarter: 2021Q1

REPORT INFORMATION
  Report Type: Spontaneous
  Country: US (occurrence: US)
  Receive Date: 20210120
  Receipt Date: 20210120
  Transmission Date: 20210419
  Serious: Yes (Disabling, Other)
  Sender: FDA-Public Use
  Company Number: None

PATIENT
  Age: 59 Year
  Sex: Female
  Weight: 67.5 kg

DRUGS (1)
  1. LISINOPRIL 20MG TAB LEG QTY 60 DRUG EXP 12/18/2021 [Suspect]
     Active Substance: LISINOPRIL
     Indication: HYPERTENSION
     Dosage: ?          QUANTITY:1 TABLET(S);?
     Route: 048
     Dates: start: 20210101, end: 20210119

REACTIONS (4)
  - Blood pressure increased [None]
  - Extrasystoles [None]
  - Drug ineffective [None]
  - Recalled product administered [None]

NARRATIVE: CASE EVENT DATE: 20210118
